FAERS Safety Report 7070186-1 (Version None)
Quarter: 2010Q4

REPORT INFORMATION
  Report Type: 
  Country: None (occurrence: None)
  Receive Date: 20101028
  Receipt Date: 20100915
  Transmission Date: 20110411
  Serious: No
  Sender: FDA-Public Use
  Company Number: US-WYE-H17588010

PATIENT
  Age: 70 Year
  Sex: Male
  Weight: 69.01 kg

DRUGS (1)
  1. ADVIL [Suspect]
     Indication: TOOTHACHE
     Dosage: 2 CAPLETS X 1
     Route: 048
     Dates: start: 20100911, end: 20100911

REACTIONS (2)
  - HYPERHIDROSIS [None]
  - RASH MORBILLIFORM [None]
